FAERS Safety Report 5929858-1 (Version None)
Quarter: 2008Q4

REPORT INFORMATION
  Report Type: 
  Country: None (occurrence: None)
  Receive Date: 20081024
  Receipt Date: 20081020
  Transmission Date: 20090506
  Serious: No
  Sender: FDA-Public Use
  Company Number: AR-ROCHE-592476

PATIENT
  Age: 26 Year
  Sex: Female

DRUGS (1)
  1. ROACUTAN [Suspect]
     Indication: ACNE
     Route: 048
     Dates: start: 20080401, end: 20081001

REACTIONS (2)
  - NO ADVERSE EVENT [None]
  - PREGNANCY [None]
